FAERS Safety Report 17336870 (Version 1)
Quarter: 2020Q1

REPORT INFORMATION
  Report Type: Spontaneous
  Country: US (occurrence: US)
  Receive Date: 20200129
  Receipt Date: 20200129
  Transmission Date: 20200409
  Serious: Yes (Other)
  Sender: FDA-Public Use
  Company Number: NVSC2020US017082

PATIENT
  Sex: Female

DRUGS (2)
  1. FEMARA [Suspect]
     Active Substance: LETROZOLE
     Indication: BREAST CANCER FEMALE
     Dosage: UNK
     Route: 065
     Dates: start: 20200113
  2. IBRANCE [Concomitant]
     Active Substance: PALBOCICLIB
     Indication: BREAST CANCER FEMALE
     Dosage: 125 MG, QD
     Route: 048
     Dates: start: 20191206

REACTIONS (11)
  - Feeling cold [Unknown]
  - Oral herpes [Unknown]
  - Coating in mouth [Unknown]
  - Constipation [Unknown]
  - Nausea [Unknown]
  - Memory impairment [Unknown]
  - Alopecia [Unknown]
  - Rhinorrhoea [Unknown]
  - Tongue discolouration [Unknown]
  - Syncope [Unknown]
  - Oropharyngeal pain [Unknown]
